FAERS Safety Report 8701558 (Version 2)
Quarter: 2013Q4

REPORT INFORMATION
  Report Type: Spontaneous
  Country: US (occurrence: US)
  Receive Date: 20120803
  Receipt Date: 20131101
  Transmission Date: 20140711
  Serious: No
  Sender: FDA-Public Use
  Company Number: US-009507513-1207USA011544

PATIENT
  Sex: Male

DRUGS (3)
  1. PEG-INTRON [Suspect]
     Indication: HEPATITIS C
     Dosage: 80 MICROGRAM, QW
     Route: 058
     Dates: start: 201205
  2. RIBASPHERE [Suspect]
  3. LASIX (FUROSEMIDE) [Concomitant]

REACTIONS (4)
  - Fatigue [Unknown]
  - Depression [Unknown]
  - Rash [Unknown]
  - Dry skin [Unknown]
